FAERS Safety Report 9044617 (Version 1)
Quarter: 2013Q1

REPORT INFORMATION
  Report Type: Report from Study
  Country: FR (occurrence: FR)
  Receive Date: 20130130
  Receipt Date: 20130130
  Transmission Date: 20140127
  Serious: Yes (Other)
  Sender: FDA-Public Use
  Company Number: FR-ROCHE-1184890

PATIENT
  Age: 78 Year
  Sex: Female

DRUGS (1)
  1. ALTEPLASE [Suspect]
     Indication: CEREBROVASCULAR ACCIDENT
     Dosage: FOR 90 MINS
     Route: 042

REACTIONS (3)
  - Intraventricular haemorrhage [Unknown]
  - Cerebral haematoma [Unknown]
  - Hypofibrinogenaemia [Recovered/Resolved]
